FAERS Safety Report 4416757-X (Version None)
Quarter: 2004Q3

REPORT INFORMATION
  Report Type: 
  Country: None (occurrence: None)
  Receive Date: 20040802
  Receipt Date: 20040720
  Transmission Date: 20050211
  Serious: Yes (Disabling)
  Sender: FDA-Public Use
  Company Number: HQWYE651824JUN04

PATIENT
  Age: 45 Year
  Sex: Female

DRUGS (8)
  1. EFFEXOR XR [Suspect]
     Indication: DEPRESSION
     Dosage: SEE IMAGE
     Route: 048
     Dates: start: 20030801, end: 20030101
  2. EFFEXOR XR [Suspect]
     Indication: DEPRESSION
     Dosage: SEE IMAGE
     Route: 048
     Dates: start: 20040101, end: 20040101
  3. EFFEXOR XR [Suspect]
     Indication: DEPRESSION
     Dosage: SEE IMAGE
     Route: 048
     Dates: start: 20040623, end: 20040101
  4. EFFEXOR XR [Suspect]
     Indication: DEPRESSION
     Dosage: SEE IMAGE
     Route: 048
     Dates: start: 20030101, end: 20040202
  5. EFFEXOR XR [Suspect]
     Indication: DEPRESSION
     Dosage: SEE IMAGE
     Route: 048
     Dates: start: 20040201, end: 20040622
  6. EFFEXOR XR [Suspect]
     Indication: DEPRESSION
     Dosage: SEE IMAGE
     Route: 048
     Dates: start: 20040101
  7. TRAZODONE HCL [Concomitant]
  8. CLONAZEPAM [Concomitant]

REACTIONS (14)
  - AFFECT LABILITY [None]
  - AKATHISIA [None]
  - ANGER [None]
  - DRUG WITHDRAWAL SYNDROME [None]
  - EMOTIONAL DISORDER [None]
  - HOSTILITY [None]
  - MANIA [None]
  - MYALGIA [None]
  - NONSPECIFIC REACTION [None]
  - PARAESTHESIA [None]
  - PARAESTHESIA ORAL [None]
  - SUICIDAL IDEATION [None]
  - TEMPOROMANDIBULAR JOINT SYNDROME [None]
  - TOOTH EXTRACTION [None]
